FAERS Safety Report 10959672 (Version 3)
Quarter: 2015Q2

REPORT INFORMATION
  Report Type: Spontaneous
  Country: BE (occurrence: BE)
  Receive Date: 20150327
  Receipt Date: 20150520
  Transmission Date: 20150821
  Serious: No
  Sender: FDA-Public Use
  Company Number: BE-ABBVIE-15K-013-1366286-00

PATIENT
  Age: 52 Year
  Sex: Female

DRUGS (3)
  1. SALBUTAMOL [Concomitant]
     Active Substance: ALBUTEROL
     Indication: PRODUCT USED FOR UNKNOWN INDICATION
  2. MONTELUKAST [Concomitant]
     Active Substance: MONTELUKAST SODIUM
     Indication: PRODUCT USED FOR UNKNOWN INDICATION
  3. HUMIRA [Suspect]
     Active Substance: ADALIMUMAB
     Indication: PSORIASIS
     Route: 058
     Dates: start: 201408

REACTIONS (9)
  - Dyspnoea [Not Recovered/Not Resolved]
  - Pneumonia [Unknown]
  - Lung infiltration [Unknown]
  - Nasal congestion [Recovered/Resolved]
  - Cough [Not Recovered/Not Resolved]
  - Headache [Unknown]
  - Rheumatic disorder [Not Recovered/Not Resolved]
  - Psoriasis [Unknown]
  - Bronchial haemorrhage [Unknown]

NARRATIVE: CASE EVENT DATE: 201412
